FAERS Safety Report 4473466-9 (Version None)
Quarter: 2004Q4

REPORT INFORMATION
  Report Type: 
  Country: None (occurrence: None)
  Receive Date: 20040920
  Receipt Date: 20040107
  Transmission Date: 20050328
  Serious: Yes (Hospitalization)
  Sender: FDA-Public Use
  Company Number: S04-USA-00024-01

PATIENT
  Age: 20 Year
  Sex: Female

DRUGS (1)
  1. CELEXA [Suspect]
     Dosage: 60 MG QD PO
     Route: 048

REACTIONS (1)
  - PANCREATITIS [None]
